FAERS Safety Report 7149386-8 (Version None)
Quarter: 2010Q4

REPORT INFORMATION
  Report Type: 
  Country: None (occurrence: None)
  Receive Date: 20101209
  Receipt Date: 20101202
  Transmission Date: 20110411
  Serious: Yes (Death, Hospitalization, Disabling, Other)
  Sender: FDA-Public Use
  Company Number: US-AMGEN-USASP2010006603

PATIENT

DRUGS (15)
  1. NPLATE [Suspect]
     Indication: MYELODYSPLASTIC SYNDROME
     Dosage: 400 A?G, UNK
     Dates: start: 20101110, end: 20101110
  2. NPLATE [Suspect]
     Indication: THROMBOCYTOPENIA
  3. PLATELETS [Concomitant]
     Dosage: UNK
     Dates: start: 20101101
  4. BLOOD TRANSFUSION, AUXILIARY PRODUCTS [Concomitant]
     Dosage: UNK
     Dates: start: 20101101
  5. METOPROLOL [Concomitant]
     Dosage: 25 MG, QD
  6. CAPTOPRIL [Concomitant]
     Dosage: 25 MG, BID
  7. TERAZOSIN HCL [Concomitant]
     Dosage: 10 MG, QD
  8. LEVOTHYROXINE SODIUM [Concomitant]
     Dosage: 100 A?G, QD
  9. FLOMAX [Concomitant]
     Dosage: 0.4 MG, QD
  10. ALLOPURINOL [Concomitant]
     Dosage: 300 MG, QD
  11. SINGULAIR [Concomitant]
     Dosage: 10 MG, QD
  12. OXYBUTYNIN [Concomitant]
     Dosage: 10 MG, QD
  13. ADVAIR DISKUS 100/50 [Concomitant]
     Dosage: 25050 A?G, BID
  14. AMBIEN [Concomitant]
     Dosage: 5 MG, QD
  15. PRILOSEC [Concomitant]
     Dosage: 20 MG, QD

REACTIONS (11)
  - ACUTE RESPIRATORY FAILURE [None]
  - ANAEMIA MEGALOBLASTIC [None]
  - ECCHYMOSIS [None]
  - GOUTY ARTHRITIS [None]
  - HAEMORRHAGE [None]
  - MYELODYSPLASTIC SYNDROME [None]
  - OCCULT BLOOD POSITIVE [None]
  - PURPURA [None]
  - SICK SINUS SYNDROME [None]
  - SPLENOMEGALY [None]
  - THROMBOCYTOPENIA [None]
